FAERS Safety Report 14486795 (Version 2)
Quarter: 2020Q4

REPORT INFORMATION
  Report Type: Spontaneous
  Country: NZ (occurrence: NZ)
  Receive Date: 20180205
  Receipt Date: 20201119
  Transmission Date: 20210113
  Serious: Yes (Death)
  Sender: FDA-Public Use
  Company Number: NZ-JNJFOC-20180201806

PATIENT
  Age: 28 Year
  Sex: Male

DRUGS (2)
  1. 6-MP [Suspect]
     Active Substance: MERCAPTOPURINE
     Indication: PRODUCT USED FOR UNKNOWN INDICATION
     Route: 065
  2. REMICADE [Suspect]
     Active Substance: INFLIXIMAB
     Indication: PRODUCT USED FOR UNKNOWN INDICATION
     Dosage: FOR APPROXIMATELY 6 MONTHS
     Route: 042
     Dates: start: 2017

REACTIONS (4)
  - Pain [Unknown]
  - Depressed mood [Unknown]
  - Completed suicide [Fatal]
  - Abdominal distension [Unknown]
